FAERS Safety Report 13589967 (Version 1)
Quarter: 2017Q2

REPORT INFORMATION
  Report Type: Spontaneous
  Country: CH (occurrence: CH)
  Receive Date: 20170529
  Receipt Date: 20170529
  Transmission Date: 20170830
  Serious: Yes (Life-Threatening, Hospitalization)
  Sender: FDA-Public Use
  Company Number: CH-ROCHE-1939639

PATIENT
  Age: 25 Year
  Sex: Male

DRUGS (20)
  1. RISPERIDON [Suspect]
     Active Substance: RISPERIDONE
     Indication: PSYCHOMOTOR HYPERACTIVITY
     Dosage: REPORTED AS RISPERIDON SANDOZ
     Route: 048
  2. OXYCODONE [Concomitant]
     Active Substance: OXYCODONE
  3. TRILEPTAL [Suspect]
     Active Substance: OXCARBAZEPINE
     Indication: MOOD ALTERED
     Route: 048
  4. ESCITALOPRAM [Concomitant]
     Active Substance: ESCITALOPRAM OXALATE
     Indication: DEPRESSION POSTOPERATIVE
     Route: 048
  5. DAFALGAN [Concomitant]
     Active Substance: ACETAMINOPHEN
     Route: 048
  6. TAMSULOSIN MEPHA [Concomitant]
     Route: 065
  7. DORMICUM (UNSPEC) [Concomitant]
     Route: 065
  8. TEMESTA EXPIDET [Suspect]
     Active Substance: LORAZEPAM
     Indication: PRODUCT USED FOR UNKNOWN INDICATION
     Dosage: 2.5 MG PER NEED. NO INFORMATION RELATED TO DOSE ADIMINSTERED
     Route: 065
  9. PANTOPRAZOL [Concomitant]
     Active Substance: PANTOPRAZOLE SODIUM
     Route: 065
  10. FENTANYL. [Suspect]
     Active Substance: FENTANYL
     Indication: CENTRAL PAIN SYNDROME
     Dosage: REPORTED AS FENTANYL MEPHA
     Route: 062
     Dates: start: 20170309, end: 20170315
  11. HALDOL [Suspect]
     Active Substance: HALOPERIDOL
     Indication: PRODUCT USED FOR UNKNOWN INDICATION
     Dosage: PER NEED. NO INFORMATION ABOUT ADMINISTRATION
     Route: 065
  12. VITAMIN D3 STREULI [Concomitant]
     Active Substance: CHOLECALCIFEROL
     Route: 065
  13. VALIUM [Suspect]
     Active Substance: DIAZEPAM
     Indication: AGITATION
     Route: 048
  14. TEMESTA (SWITZERLAND) [Suspect]
     Active Substance: LORAZEPAM
     Indication: PRODUCT USED FOR UNKNOWN INDICATION
     Dosage: PER NEED. NO INFORMATION ABOUT ADMINISTRATION
     Route: 042
  15. CLEXANE [Concomitant]
     Active Substance: ENOXAPARIN SODIUM
     Route: 058
  16. HYDROCORTONE [Concomitant]
     Active Substance: HYDROCORTISONE
     Indication: HYPOPITUITARISM
     Route: 048
  17. FENTANYL. [Suspect]
     Active Substance: FENTANYL
     Indication: CENTRAL PAIN SYNDROME
     Dosage: REPORTED AS FENTANYL MEPHA
     Route: 062
     Dates: start: 20170316, end: 20170318
  18. ELTROXIN [Concomitant]
     Active Substance: LEVOTHYROXINE
     Route: 048
     Dates: start: 201507
  19. MINIRIN [Concomitant]
     Active Substance: DESMOPRESSIN ACETATE
     Route: 065
  20. MORPHINE [Concomitant]
     Active Substance: MORPHINE

REACTIONS (3)
  - Coma [Recovered/Resolved]
  - Bradycardia [Recovered/Resolved]
  - Bradypnoea [Recovered/Resolved]

NARRATIVE: CASE EVENT DATE: 20170318
